FAERS Safety Report 7058181-X (Version None)
Quarter: 2010Q4

REPORT INFORMATION
  Report Type: 
  Country: None (occurrence: None)
  Receive Date: 20101022
  Receipt Date: 20101014
  Transmission Date: 20110411
  Serious: Yes (Disabling, Other)
  Sender: FDA-Public Use
  Company Number: AU-PFIZER INC-2010109091

PATIENT
  Age: 55 Year
  Sex: Female

DRUGS (3)
  1. CHAMPIX [Suspect]
  2. KARVEZIDE [Concomitant]
     Indication: HYPERTENSION
     Dosage: 12.5/150, 1X/DAY
     Route: 048
  3. TRISEQUENS [Concomitant]
     Indication: MENOPAUSE
     Dosage: 2 UNK, UNK

REACTIONS (4)
  - ACTIVITIES OF DAILY LIVING IMPAIRED [None]
  - DEPRESSION [None]
  - EMOTIONAL DISORDER [None]
  - IRRITABILITY [None]
